FAERS Safety Report 4998438-7 (Version None)
Quarter: 2006Q2

REPORT INFORMATION
  Report Type: 
  Country: None (occurrence: None)
  Receive Date: 20060510
  Receipt Date: 20050728
  Transmission Date: 20061013
  Serious: Yes (Other)
  Sender: FDA-Public Use
  Company Number: 0405GBR00191

PATIENT
  Age: 56 Year
  Sex: Female

DRUGS (11)
  1. AUGMENTIN '125' [Suspect]
     Route: 065
  2. CO-DYDRAMOL [Suspect]
     Route: 065
  3. METHOTREXATE [Suspect]
     Route: 065
  4. VIOXX [Suspect]
     Route: 048
  5. FLUOXETINE [Suspect]
     Route: 065
  6. PREMARIN [Suspect]
     Route: 065
  7. HUMIRA [Suspect]
     Route: 051
  8. CLAVULIN [Concomitant]
  9. PARAMOL [Concomitant]
  10. CONJUGATED OESTROGENS [Concomitant]
  11. FLUCLOXACILLIN [Concomitant]

REACTIONS (1)
  - RETINAL HAEMORRHAGE [None]
